FAERS Safety Report 4784903-4 (Version None)
Quarter: 2005Q3

REPORT INFORMATION
  Report Type: 
  Country: None (occurrence: None)
  Receive Date: 20050930
  Receipt Date: 20050920
  Transmission Date: 20060218
  Serious: Yes (Hospitalization)
  Sender: FDA-Public Use
  Company Number: PHHO2005GB15278

PATIENT
  Age: 26 Year
  Sex: Female

DRUGS (5)
  1. SYNTOCINON [Suspect]
     Route: 042
  2. MISOPROSTOL [Suspect]
     Dosage: 25 UG
     Route: 067
     Dates: start: 20050911, end: 20050911
  3. MISOPROSTOL [Suspect]
     Dosage: 25 UG
     Route: 067
     Dates: start: 20050911, end: 20050911
  4. MISOPROSTOL [Suspect]
     Dosage: 25 UG
     Route: 067
     Dates: start: 20050911, end: 20050911
  5. DINOPROSTONE [Suspect]
     Dosage: 2 MG

REACTIONS (4)
  - ARTIFICIAL RUPTURE OF MEMBRANES [None]
  - CAESAREAN SECTION [None]
  - DRUG EXPOSURE DURING PREGNANCY [None]
  - UTERINE CONTRACTIONS ABNORMAL [None]
